FAERS Safety Report 24848659 (Version 1)
Quarter: 2025Q1

REPORT INFORMATION
  Report Type: Spontaneous
  Country: US (occurrence: US)
  Receive Date: 20250116
  Receipt Date: 20250116
  Transmission Date: 20250409
  Serious: No
  Sender: QUAGEN PHARMACEUTICALS
  Company Number: US-QUAGEN-2025QUASPO00073

PATIENT

DRUGS (4)
  1. LIDOCAINE [Suspect]
     Active Substance: LIDOCAINE
     Indication: Pharyngeal hypoaesthesia
     Route: 065
  2. IBUPROFEN [Suspect]
     Active Substance: IBUPROFEN
     Indication: Dysphagia
     Route: 065
  3. ALLEGRA-D [Suspect]
     Active Substance: FEXOFENADINE HYDROCHLORIDE\PSEUDOEPHEDRINE HYDROCHLORIDE
     Indication: Dysphagia
     Route: 065
  4. LEMON [Suspect]
     Active Substance: LEMON
     Indication: Dysphagia
     Route: 065

REACTIONS (3)
  - Lymphadenopathy [Unknown]
  - Paraesthesia [Unknown]
  - Drug ineffective [Unknown]
